FAERS Safety Report 7990163-3 (Version None)
Quarter: 2011Q4

REPORT INFORMATION
  Report Type: 
  Country: None (occurrence: None)
  Receive Date: 20111219
  Receipt Date: 20101109
  Transmission Date: 20120403
  Serious: No
  Sender: FDA-Public Use
  Company Number: US-ASTRAZENECA-2010SE32375

PATIENT
  Age: 56 Year
  Sex: Female
  Weight: 58.5 kg

DRUGS (12)
  1. CRESTOR [Suspect]
     Indication: BLOOD CHOLESTEROL INCREASED
     Route: 048
     Dates: start: 20091123, end: 20100201
  2. CRESTOR [Suspect]
     Route: 048
     Dates: start: 20100701
  3. CRESTOR [Suspect]
     Route: 048
  4. CRESTOR [Suspect]
     Indication: HYPERLIPIDAEMIA
     Route: 048
     Dates: start: 20091123, end: 20100201
  5. CRESTOR [Suspect]
     Route: 048
  6. VITAMIN TAB [Concomitant]
  7. CRESTOR [Suspect]
     Route: 048
     Dates: start: 20100701
  8. ASPIRIN [Concomitant]
  9. FLAX SEED [Concomitant]
  10. CRESTOR [Suspect]
     Route: 048
     Dates: start: 20100201, end: 20100601
  11. CRESTOR [Suspect]
     Route: 048
     Dates: start: 20100201, end: 20100601
  12. CITRICAL PLUS D [Concomitant]

REACTIONS (6)
  - PAIN IN EXTREMITY [None]
  - DRUG DOSE OMISSION [None]
  - ANXIETY [None]
  - BACK PAIN [None]
  - PAIN [None]
  - FIBROMYALGIA [None]
